FAERS Safety Report 10025973 (Version 4)
Quarter: 2014Q2

REPORT INFORMATION
  Report Type: Report from Study
  Country: ES (occurrence: ES)
  Receive Date: 20140320
  Receipt Date: 20140425
  Transmission Date: 20141212
  Serious: Yes (Hospitalization)
  Sender: FDA-Public Use
  Company Number: ES-CELGENEUS-144-AB007-14030298

PATIENT
  Age: 13 Year
  Sex: Female
  Weight: 49 kg

DRUGS (17)
  1. ABI-007 [Suspect]
     Indication: ALVEOLAR RHABDOMYOSARCOMA
     Dosage: 120 MILLIGRAM/SQ. METER
     Route: 041
     Dates: start: 20140212, end: 20140226
  2. ABI-007 [Suspect]
     Dosage: 120 MILLIGRAM/SQ. METER
     Route: 041
     Dates: end: 20140312
  3. DEXCLORFENIRAMINE [Concomitant]
     Indication: PRURITUS
     Route: 041
     Dates: start: 20140211, end: 20140225
  4. DEXCLORFENIRAMINE [Concomitant]
     Route: 041
     Dates: start: 20140303, end: 20140314
  5. HYDROXICINE [Concomitant]
     Indication: PRURITUS
     Dosage: ML
     Route: 048
     Dates: start: 20140211, end: 20140212
  6. HYDROXICINE [Concomitant]
     Dosage: ML
     Route: 048
     Dates: start: 20140218, end: 20140218
  7. HYDROXICINE [Concomitant]
     Route: 048
     Dates: start: 20140303, end: 20140306
  8. LORATADINE [Concomitant]
     Indication: PRURITUS
     Route: 048
     Dates: start: 20140212, end: 20140212
  9. IBUPROFEN [Concomitant]
     Indication: BACK PAIN
     Route: 048
     Dates: start: 20140211, end: 20140211
  10. OMEPRAZOLE [Concomitant]
     Indication: ABDOMINAL PAIN
     Route: 048
     Dates: start: 20140212, end: 20140212
  11. OMEPRAZOLE [Concomitant]
     Route: 041
     Dates: start: 20140303, end: 20140303
  12. OMEPRAZOLE [Concomitant]
     Route: 041
     Dates: start: 20140304
  13. TRIMETOPRIM/SULFAMETOXAZOLE [Concomitant]
     Indication: PROPHYLAXIS
     Dosage: 160/180
     Route: 048
     Dates: start: 20121004, end: 20140303
  14. TRIMETOPRIM/SULFAMETOXAZOLE [Concomitant]
     Dosage: 160/180
     Route: 048
     Dates: start: 20140316
  15. ONDANSETRON [Concomitant]
     Indication: PROPHYLAXIS
     Route: 041
     Dates: start: 20140303, end: 20140304
  16. ONDANSETRON [Concomitant]
     Route: 041
     Dates: start: 20140211, end: 20140228
  17. ONDANSETRON [Concomitant]
     Route: 041
     Dates: start: 20140305, end: 20140312

REACTIONS (2)
  - Dizziness [Recovered/Resolved]
  - Back pain [Recovered/Resolved]
